FAERS Safety Report 25503161 (Version 1)
Quarter: 2025Q3

REPORT INFORMATION
  Report Type: Spontaneous
  Country: US (occurrence: US)
  Receive Date: 20250702
  Receipt Date: 20250702
  Transmission Date: 20251021
  Serious: Yes (Hospitalization)
  Sender: Alora Pharma
  Company Number: US-ACELLA PHARMACEUTICALS, LLC-2025ALO02325

PATIENT
  Age: 33 Year
  Sex: Female

DRUGS (3)
  1. LACOSAMIDE [Suspect]
     Active Substance: LACOSAMIDE
  2. LAMOTRIGINE [Concomitant]
     Active Substance: LAMOTRIGINE
  3. LEVETIRACETAM [Concomitant]
     Active Substance: LEVETIRACETAM

REACTIONS (3)
  - Fracture [Recovered/Resolved]
  - Atrioventricular block complete [Recovered/Resolved]
  - Fall [Recovered/Resolved]
